FAERS Safety Report 19971822 (Version 6)
Quarter: 2022Q4

REPORT INFORMATION
  Report Type: Spontaneous
  Country: US (occurrence: US)
  Receive Date: 20211020
  Receipt Date: 20221215
  Transmission Date: 20230113
  Serious: Yes (Life-Threatening)
  Sender: FDA-Public Use
  Company Number: US-BSC-2021000123

PATIENT
  Age: 52 Year
  Sex: Female
  Weight: 72.57 kg

DRUGS (7)
  1. VARITHENA [Suspect]
     Active Substance: POLIDOCANOL
     Indication: Varicose vein
     Dosage: 18 ML CANISTER
     Dates: start: 20210702, end: 20210702
  2. MELOXICAM [Suspect]
     Active Substance: MELOXICAM
     Indication: Arthritis
     Route: 048
     Dates: start: 20201118
  3. AMLODIPINE BESYLATE AND BENAZEPRIL HYDROCHLORIDE [Suspect]
     Active Substance: AMLODIPINE BESYLATE\BENAZEPRIL HYDROCHLORIDE
     Indication: Hypertension
     Dosage: 2.5 - 10 MG
     Dates: start: 20191126
  4. EPINEPHRINE [Suspect]
     Active Substance: EPINEPHRINE
     Indication: Product used for unknown indication
     Dosage: 5 DOSES WERE GIVEN IN HOSPITAL
     Dates: start: 20211008
  5. EPINEPHRINE [Suspect]
     Active Substance: EPINEPHRINE
     Indication: Product used for unknown indication
     Dosage: 1 DOSE OF EXPIRED DRUG WAS SELF ADMINISTERED
     Dates: start: 20220928
  6. ALBUTEROL [Suspect]
     Active Substance: ALBUTEROL
     Indication: Product used for unknown indication
     Dates: start: 20211008
  7. ASPIRIN [Concomitant]
     Active Substance: ASPIRIN
     Indication: Product used for unknown indication
     Dates: start: 20191126

REACTIONS (17)
  - Hypersensitivity [Recovered/Resolved]
  - Hypersensitivity [Recovered/Resolved]
  - Hypersensitivity [Recovered/Resolved]
  - Hypersensitivity [Recovered/Resolved]
  - Hypersensitivity [Recovered/Resolved]
  - Hypersensitivity [Not Recovered/Not Resolved]
  - Hypersensitivity [Unknown]
  - Hypersensitivity [Unknown]
  - Hypersensitivity [Unknown]
  - Hypersensitivity [Unknown]
  - Hypersensitivity [Unknown]
  - Hypersensitivity [Unknown]
  - Hypersensitivity [Unknown]
  - Anaphylactic reaction [Recovered/Resolved]
  - Anaphylactic reaction [Recovered/Resolved]
  - Hypersensitivity [Unknown]
  - Anxiety [Recovered/Resolved]

NARRATIVE: CASE EVENT DATE: 20210702
